FAERS Safety Report 9921428 (Version 2)
Quarter: 2014Q1

REPORT INFORMATION
  Report Type: Spontaneous
  Country: CO (occurrence: CO)
  Receive Date: 20140225
  Receipt Date: 20140225
  Transmission Date: 20141002
  Serious: Yes (Other)
  Sender: FDA-Public Use
  Company Number: PHHY2014CO006728

PATIENT
  Sex: Male

DRUGS (1)
  1. EXFORGE HCT [Suspect]
     Indication: HYPERTENSION
     Dosage: 1 DF (160 VALS/ 10 AMLO/ 12.5 HYDR), DAILY
     Route: 048

REACTIONS (2)
  - Salivary hypersecretion [Not Recovered/Not Resolved]
  - Libido decreased [Not Recovered/Not Resolved]
